FAERS Safety Report 7757313-5 (Version None)
Quarter: 2011Q3

REPORT INFORMATION
  Report Type: 
  Country: None (occurrence: None)
  Receive Date: 20110916
  Receipt Date: 20110907
  Transmission Date: 20111222
  Serious: Yes (Hospitalization, Other)
  Sender: FDA-Public Use
  Company Number: JP-ABBOTT-11P-087-0845683-00

PATIENT
  Age: 22 Year
  Sex: Female

DRUGS (5)
  1. LEUPROLIDE ACETATE [Suspect]
     Indication: MENSTRUAL DISORDER
     Route: 058
     Dates: start: 20110721, end: 20110721
  2. ZOSYN [Suspect]
     Indication: FEBRILE NEUTROPENIA
     Route: 041
     Dates: start: 20110719, end: 20110722
  3. FUNGUARD [Suspect]
     Indication: FEBRILE NEUTROPENIA
     Route: 041
     Dates: start: 20110714, end: 20110729
  4. DORIPENEM MONOHYDRATE [Suspect]
     Indication: FEBRILE NEUTROPENIA
     Route: 041
     Dates: start: 20110722, end: 20110729
  5. TARGOCID [Suspect]
     Indication: FEBRILE NEUTROPENIA
     Route: 041
     Dates: start: 20110715, end: 20110727

REACTIONS (2)
  - STEVENS-JOHNSON SYNDROME [None]
  - PYREXIA [None]
